FAERS Safety Report 18755169 (Version 2)
Quarter: 2021Q1

REPORT INFORMATION
  Report Type: Spontaneous
  Country: ES (occurrence: ES)
  Receive Date: 20210119
  Receipt Date: 20210125
  Transmission Date: 20210419
  Serious: Yes (Hospitalization, Other)
  Sender: FDA-Public Use
  Company Number: NVSC2021ES009755

PATIENT
  Age: 55 Year
  Sex: Female

DRUGS (2)
  1. HYDROXYCHLOROQUINE SULFATE. [Suspect]
     Active Substance: HYDROXYCHLOROQUINE SULFATE
     Indication: COVID-19 PNEUMONIA
     Dosage: 200 MG, Q12H
     Route: 065
     Dates: start: 20200329, end: 20200415
  2. AZITHROMYCIN ANHYDROUS. [Suspect]
     Active Substance: AZITHROMYCIN ANHYDROUS
     Indication: COVID-19 PNEUMONIA
     Dosage: UNK
     Route: 065
     Dates: start: 20200329, end: 20200415

REACTIONS (4)
  - Skin lesion [Recovered/Resolved]
  - Product use in unapproved indication [Unknown]
  - Erythema multiforme [Unknown]
  - Dermatitis [Unknown]

NARRATIVE: CASE EVENT DATE: 20200410
